FAERS Safety Report 13344458 (Version 1)
Quarter: 2017Q1

REPORT INFORMATION
  Report Type: Spontaneous
  Country: CA (occurrence: CA)
  Receive Date: 20170317
  Receipt Date: 20170317
  Transmission Date: 20170428
  Serious: Yes (Other)
  Sender: FDA-Public Use
  Company Number: CA-ROCHE-1904129

PATIENT
  Sex: Female

DRUGS (34)
  1. DEXAMETHASONE. [Concomitant]
     Active Substance: DEXAMETHASONE
  2. LOPERAMIDE [Concomitant]
     Active Substance: LOPERAMIDE
  3. NORFLEX [Concomitant]
     Active Substance: ORPHENADRINE CITRATE
  4. OMNARIS [Concomitant]
     Active Substance: CICLESONIDE
     Route: 065
  5. ATIVAN [Concomitant]
     Active Substance: LORAZEPAM
  6. LASIX [Concomitant]
     Active Substance: FUROSEMIDE
  7. RESTASIS [Concomitant]
     Active Substance: CYCLOSPORINE
     Route: 065
  8. URISPAS [Concomitant]
     Active Substance: FLAVOXATE HYDROCHLORIDE
     Route: 065
  9. VAGIFEM [Concomitant]
     Active Substance: ESTRADIOL
  10. ACETAMINOPHEN. [Concomitant]
     Active Substance: ACETAMINOPHEN
  11. BENADRYL [Concomitant]
     Active Substance: DIPHENHYDRAMINE HYDROCHLORIDE
  12. PANTOLOC [Concomitant]
     Active Substance: PANTOPRAZOLE SODIUM
     Route: 065
  13. XELJANZ [Suspect]
     Active Substance: TOFACITINIB CITRATE
     Indication: PRODUCT USED FOR UNKNOWN INDICATION
     Route: 065
  14. HYDROMORPHONE [Concomitant]
     Active Substance: HYDROMORPHONE
  15. TRIMETHOPRIM. [Concomitant]
     Active Substance: TRIMETHOPRIM
  16. ARAVA [Suspect]
     Active Substance: LEFLUNOMIDE
     Indication: RHEUMATOID ARTHRITIS
     Route: 065
  17. HUMIRA [Suspect]
     Active Substance: ADALIMUMAB
     Indication: PRODUCT USED FOR UNKNOWN INDICATION
     Route: 065
  18. REMICADE [Suspect]
     Active Substance: INFLIXIMAB
     Indication: PRODUCT USED FOR UNKNOWN INDICATION
     Route: 065
  19. CODEINE [Concomitant]
     Active Substance: CODEINE
  20. ENBREL [Suspect]
     Active Substance: ETANERCEPT
     Indication: RHEUMATOID ARTHRITIS
     Route: 065
  21. METHOTREXATE SODIUM. [Suspect]
     Active Substance: METHOTREXATE SODIUM
     Indication: PRODUCT USED FOR UNKNOWN INDICATION
     Route: 065
  22. DARIFENACIN HYDROBROMIDE. [Concomitant]
     Active Substance: DARIFENACIN HYDROBROMIDE
  23. DILAUDID [Concomitant]
     Active Substance: HYDROMORPHONE HYDROCHLORIDE
  24. KINERET [Concomitant]
     Active Substance: ANAKINRA
     Route: 065
  25. HYDROXYCHLOROQUINE [Suspect]
     Active Substance: HYDROXYCHLOROQUINE
     Indication: PRODUCT USED FOR UNKNOWN INDICATION
     Route: 065
  26. ORENCIA [Suspect]
     Active Substance: ABATACEPT
     Indication: PRODUCT USED FOR UNKNOWN INDICATION
     Route: 065
  27. MORPHINE SULFATE. [Concomitant]
     Active Substance: MORPHINE SULFATE
  28. RITUXAN [Concomitant]
     Active Substance: RITUXIMAB
     Route: 042
  29. SYNTHROID [Concomitant]
     Active Substance: LEVOTHYROXINE SODIUM
  30. ACTEMRA [Suspect]
     Active Substance: TOCILIZUMAB
     Indication: PRODUCT USED FOR UNKNOWN INDICATION
     Route: 065
  31. SODIUM AUROTHIOMALATE [Suspect]
     Active Substance: GOLD SODIUM THIOMALATE
     Indication: PRODUCT USED FOR UNKNOWN INDICATION
     Route: 030
  32. DESOXIMETASONE. [Concomitant]
     Active Substance: DESOXIMETASONE
  33. KENALOG (CANADA) [Concomitant]
     Route: 065
  34. OXYNEO [Concomitant]
     Active Substance: OXYCODONE
     Route: 065

REACTIONS (12)
  - Anaemia [Unknown]
  - Leukopenia [Unknown]
  - Blood cholesterol increased [Unknown]
  - Synovitis [Unknown]
  - Arthritis [Unknown]
  - Fibromyalgia [Unknown]
  - Infection [Unknown]
  - Joint swelling [Unknown]
  - Liver function test abnormal [Unknown]
  - Herpes zoster [Unknown]
  - Peripheral swelling [Unknown]
  - Soft tissue disorder [Unknown]
